FAERS Safety Report 8369781-9 (Version None)
Quarter: 2012Q2

REPORT INFORMATION
  Report Type: 
  Country: None (occurrence: None)
  Receive Date: 20120518
  Receipt Date: 20120513
  Transmission Date: 20120825
  Serious: Yes (Other)
  Sender: FDA-Public Use
  Company Number: PHHY2012MX042036

PATIENT
  Sex: Male

DRUGS (3)
  1. RASILEZ [Suspect]
     Indication: HYPERTENSION
     Dosage: 1 DF (300 MG), DAILY
     Dates: start: 20111010
  2. RASILEZ [Suspect]
     Dosage: 2 DF, DAILY
     Dates: start: 20120301
  3. GALVUS MET [Suspect]
     Dosage: 0.5 DF, BID
     Dates: start: 20111010

REACTIONS (4)
  - BLOOD PRESSURE INCREASED [None]
  - WRONG TECHNIQUE IN DRUG USAGE PROCESS [None]
  - ASPHYXIA [None]
  - FATIGUE [None]
